FAERS Safety Report 9076556 (Version 1)
Quarter: 2013Q1

REPORT INFORMATION
  Report Type: Report from Study
  Country: US (occurrence: US)
  Receive Date: 20130129
  Receipt Date: 20130129
  Transmission Date: 20140127
  Serious: No
  Sender: FDA-Public Use
  Company Number: US-ABBOTT-12P-163-0932339-00

PATIENT
  Age: 78 Year
  Sex: Female

DRUGS (25)
  1. HUMIRA 40 MG/0.8 ML PEN [Suspect]
     Indication: RHEUMATOID ARTHRITIS
     Route: 058
     Dates: start: 20120404, end: 20120522
  2. METHADONE [Concomitant]
     Indication: PAIN
  3. METHOTREXATE [Concomitant]
     Indication: RHEUMATOID ARTHRITIS
     Dosage: 2.5MG 8 TABLETS ONCE PER WEEK
  4. PLAQUENIL [Concomitant]
     Indication: RHEUMATOID ARTHRITIS
  5. ACETAMINOPHEN [Concomitant]
     Indication: PAIN
  6. OYSTER CAL [Concomitant]
     Indication: PRODUCT USED FOR UNKNOWN INDICATION
  7. CARBAMAZEPINE [Concomitant]
     Indication: CONVULSION
     Dosage: 200 MG IN AM, 300 MG IN PM
  8. CARBAMAZEPINE [Concomitant]
     Dosage: EVERY PM
  9. VITAMIN C [Concomitant]
     Indication: PRODUCT USED FOR UNKNOWN INDICATION
  10. GLIPIZIDE [Concomitant]
     Indication: DIABETES MELLITUS
  11. OCUVITE [Concomitant]
     Indication: PRODUCT USED FOR UNKNOWN INDICATION
  12. VITAMIN B-12 [Concomitant]
     Indication: PRODUCT USED FOR UNKNOWN INDICATION
  13. KLOR-CON [Concomitant]
     Indication: PRODUCT USED FOR UNKNOWN INDICATION
  14. FOLIC ACID [Concomitant]
     Indication: PRODUCT USED FOR UNKNOWN INDICATION
  15. MULTIVITAMIN [Concomitant]
     Indication: PRODUCT USED FOR UNKNOWN INDICATION
     Dosage: DAILY
  16. FUROSEMIDE [Concomitant]
     Indication: PRODUCT USED FOR UNKNOWN INDICATION
  17. OMEPRAZOLE [Concomitant]
     Indication: PRODUCT USED FOR UNKNOWN INDICATION
     Dosage: 40 MG EVERY AM
  18. ZINC OXIDE [Concomitant]
     Indication: RASH
  19. LOTRISONE [Concomitant]
     Indication: RASH
  20. LACTULOSE [Concomitant]
     Indication: CONSTIPATION
     Dosage: 10-15MG AS NEEDED
  21. MYLANTA [Concomitant]
     Indication: PRODUCT USED FOR UNKNOWN INDICATION
  22. ALBUTEROL/IPRATROPIUM BROMIDE [Concomitant]
     Indication: CHRONIC OBSTRUCTIVE PULMONARY DISEASE
     Dosage: 5/2.5MG NEBULIZER EVERY 4 HRS AS NEEDED
  23. AZO CRANBERRY [Concomitant]
     Indication: BLADDER DISORDER
     Dosage: ONCE DAILY
  24. OPTICON EYE DROPS [Concomitant]
     Indication: PRODUCT USED FOR UNKNOWN INDICATION
     Dosage: BOTH EYES TWICE DAILY
     Route: 047
  25. ZYRTEC [Concomitant]
     Indication: SEASONAL ALLERGY

REACTIONS (3)
  - Cough [Recovered/Resolved]
  - Injection site bruising [Recovering/Resolving]
  - Infection susceptibility increased [Unknown]
